FAERS Safety Report 6787097-9 (Version None)
Quarter: 2010Q2

REPORT INFORMATION
  Report Type: 
  Country: None (occurrence: None)
  Receive Date: 20100623
  Receipt Date: 20100610
  Transmission Date: 20101027
  Serious: Yes (Hospitalization, Other)
  Sender: FDA-Public Use
  Company Number: PHHY2010BR39551

PATIENT
  Age: 59 Year
  Sex: Male

DRUGS (3)
  1. CYCLOSPORINE [Suspect]
     Indication: RENAL TRANSPLANT
     Dosage: UNK
     Dates: start: 20040101
  2. MYCOPHENOLATE MOFETIL [Suspect]
     Indication: RENAL TRANSPLANT
     Dosage: 2 G, UNK
     Dates: start: 20040101
  3. PREDNISONE [Suspect]
     Indication: RENAL TRANSPLANT
     Dosage: 7.5 MG, UNK

REACTIONS (6)
  - ARTHRALGIA [None]
  - INFLAMMATION [None]
  - MYCOBACTERIAL INFECTION [None]
  - NODULE ON EXTREMITY [None]
  - TENDON RUPTURE [None]
  - ULCER [None]
